FAERS Safety Report 6310408-5 (Version None)
Quarter: 2009Q3

REPORT INFORMATION
  Report Type: 
  Country: None (occurrence: None)
  Receive Date: 20090814
  Receipt Date: 20090814
  Transmission Date: 20100115
  Serious: Yes (Other)
  Sender: FDA-Public Use
  Company Number: US-PFIZER INC-2009238960

PATIENT
  Sex: Female
  Weight: 63.492 kg

DRUGS (11)
  1. MEDROL [Suspect]
     Indication: EAR DISORDER
     Dates: start: 20090315, end: 20090501
  2. MEDROL [Suspect]
     Indication: VIRAL INFECTION
  3. MEDROL [Suspect]
     Indication: BACTERIAL INFECTION
  4. PREDNISONE [Suspect]
     Indication: EAR DISORDER
     Dosage: UNK
     Route: 048
     Dates: start: 20090315, end: 20090501
  5. PREDNISONE [Suspect]
     Indication: VIRAL INFECTION
  6. PREDNISONE [Suspect]
     Indication: BACTERIAL INFECTION
  7. AVELOX [Suspect]
  8. AUGMENTIN [Concomitant]
     Route: 048
  9. VITAMIN D [Concomitant]
     Route: 048
  10. LEVAQUIN [Concomitant]
  11. BACTRIM [Concomitant]

REACTIONS (3)
  - GAIT DISTURBANCE [None]
  - MUSCULAR WEAKNESS [None]
  - OSTEOPENIA [None]
